FAERS Safety Report 6329065-7 (Version None)
Quarter: 2009Q3

REPORT INFORMATION
  Report Type: 
  Country: None (occurrence: None)
  Receive Date: 20090826
  Receipt Date: 20090818
  Transmission Date: 20100115
  Serious: Yes (Other)
  Sender: FDA-Public Use
  Company Number: PHHO2009TH10187

PATIENT
  Sex: Female

DRUGS (3)
  1. CERTICAN [Suspect]
     Indication: NEUROENDOCRINE TUMOUR
     Dosage: 5 MG DAILY
     Route: 048
  2. CERTICAN [Suspect]
     Dosage: 10 MG DAILY
     Route: 048
  3. CERTICAN [Suspect]
     Dosage: 5 MG DAILY
     Route: 048

REACTIONS (2)
  - HALLUCINATION, VISUAL [None]
  - PNEUMONIA [None]
